FAERS Safety Report 19632171 (Version 1)
Quarter: 2021Q3

REPORT INFORMATION
  Report Type: Spontaneous
  Country: US (occurrence: US)
  Receive Date: 20210728
  Receipt Date: 20210728
  Transmission Date: 20211014
  Serious: No
  Sender: FDA-Public Use
  Company Number: US-ROCHE-2601858

PATIENT
  Age: 45 Year
  Sex: Male

DRUGS (3)
  1. XELODA [Suspect]
     Active Substance: CAPECITABINE
     Indication: PRODUCT USED FOR UNKNOWN INDICATION
     Route: 048
     Dates: start: 20200301
  2. XELODA [Suspect]
     Active Substance: CAPECITABINE
     Route: 048
     Dates: start: 201904
  3. XELODA [Suspect]
     Active Substance: CAPECITABINE
     Route: 048
     Dates: start: 20200301

REACTIONS (8)
  - Dizziness [Unknown]
  - Alopecia [Unknown]
  - Hyperaesthesia [Unknown]
  - Fatigue [Unknown]
  - Ill-defined disorder [Recovering/Resolving]
  - Dry mouth [Unknown]
  - Diarrhoea [Unknown]
  - Nausea [Unknown]

NARRATIVE: CASE EVENT DATE: 20200301
